FAERS Safety Report 7622568-4 (Version None)
Quarter: 2011Q3

REPORT INFORMATION
  Report Type: 
  Country: None (occurrence: None)
  Receive Date: 20110712
  Receipt Date: 20110627
  Transmission Date: 20111222
  Serious: Yes (Death)
  Sender: FDA-Public Use
  Company Number: TPG2011A01352

PATIENT
  Age: 75 Year
  Sex: Male

DRUGS (6)
  1. ACTOS [Suspect]
     Indication: TYPE 2 DIABETES MELLITUS
     Dosage: 45 MG (45 MG, 1 IN 1 D) PER ORAL
     Route: 048
     Dates: start: 20101027, end: 20110328
  2. LEVOTHYROXINE SODIUM [Concomitant]
  3. CAPTOBETA 50/25 (HYDROCHLOROTHIAZIDE, CAPTOPRIL) [Concomitant]
  4. XELEVIA (SITAGLIPTIN) [Concomitant]
  5. ASPIRIN [Concomitant]
  6. SPIRIVA [Concomitant]

REACTIONS (2)
  - NEUROENDOCRINE CARCINOMA [None]
  - LUNG ADENOCARCINOMA [None]
